FAERS Safety Report 11488869 (Version 2)
Quarter: 2015Q3

REPORT INFORMATION
  Report Type: Report from Study
  Country: BR (occurrence: BR)
  Receive Date: 20150909
  Receipt Date: 20150910
  Transmission Date: 20151125
  Serious: Yes (Hospitalization, Other)
  Sender: FDA-Public Use
  Company Number: PHHY2015BR092148

PATIENT
  Age: 79 Year
  Sex: Female

DRUGS (3)
  1. TRILEPTAL [Suspect]
     Active Substance: OXCARBAZEPINE
     Indication: TRIGEMINAL NEURALGIA
     Dosage: 300 MG, TID  (1 TABLET IN THE MORNING, 2 TABLETS IN THE AFTERNOON + 1 TABLET AT NIGHT)
     Route: 048
     Dates: end: 201506
  2. EXELON [Suspect]
     Active Substance: RIVASTIGMINE TARTRATE
     Indication: PRODUCT USED FOR UNKNOWN INDICATION
     Dosage: PATCH 5 (CM2)
     Route: 062
  3. TRILEPTAL [Suspect]
     Active Substance: OXCARBAZEPINE
     Dosage: 600 MG, TID (1 TABLET 3 TIMES A DAY)
     Route: 048
     Dates: start: 201507

REACTIONS (6)
  - Femur fracture [Recovering/Resolving]
  - Dizziness [Not Recovered/Not Resolved]
  - Neuralgia [Unknown]
  - Fall [Recovering/Resolving]
  - Anaemia [Unknown]
  - Product use issue [Unknown]

NARRATIVE: CASE EVENT DATE: 201507
